FAERS Safety Report 13022615 (Version 1)
Quarter: 2016Q4

REPORT INFORMATION
  Report Type: Spontaneous
  Country: FR (occurrence: FR)
  Receive Date: 20161213
  Receipt Date: 20161213
  Transmission Date: 20170207
  Serious: Yes (Other)
  Sender: FDA-Public Use
  Company Number: FR-PFIZER INC-2016575312

PATIENT
  Age: 69 Year
  Sex: Male

DRUGS (1)
  1. CORDARONE [Suspect]
     Active Substance: AMIODARONE HYDROCHLORIDE
     Dosage: 1 DF, 1X/DAY
     Route: 048
     Dates: start: 2012, end: 201611

REACTIONS (3)
  - Asthenia [Unknown]
  - Palpitations [Unknown]
  - Arrhythmia [Unknown]
